FAERS Safety Report 15314051 (Version 1)
Quarter: 2018Q3

REPORT INFORMATION
  Report Type: Spontaneous
  Country: CA (occurrence: CA)
  Receive Date: 20180824
  Receipt Date: 20180824
  Transmission Date: 20181010
  Serious: Yes (Other)
  Sender: FDA-Public Use
  Company Number: CA-AMGEN-CANSP2018115005

PATIENT
  Sex: Male

DRUGS (4)
  1. METHOTREXATE. [Concomitant]
     Active Substance: METHOTREXATE
     Dosage: UNK
  2. PLAQUENIL [Concomitant]
     Active Substance: HYDROXYCHLOROQUINE SULFATE
     Indication: PRODUCT USED FOR UNKNOWN INDICATION
     Dosage: UNK
     Route: 065
  3. PREDNISONE. [Concomitant]
     Active Substance: PREDNISONE
     Dosage: UNK
  4. ENBREL [Suspect]
     Active Substance: ETANERCEPT
     Indication: PRODUCT USED FOR UNKNOWN INDICATION
     Dosage: UNK
     Route: 065

REACTIONS (11)
  - Hiatus hernia [Unknown]
  - Eye haemorrhage [Recovered/Resolved]
  - Drug hypersensitivity [Unknown]
  - Osteoarthritis [Unknown]
  - Ulcer haemorrhage [Unknown]
  - Trismus [Recovered/Resolved]
  - Headache [Unknown]
  - Rheumatoid arthritis [Unknown]
  - Immunosuppression [Unknown]
  - Respiratory distress [Unknown]
  - Emphysema [Unknown]

NARRATIVE: CASE EVENT DATE: 2017
